FAERS Safety Report 4965515-6 (Version None)
Quarter: 2006Q2

REPORT INFORMATION
  Report Type: 
  Country: None (occurrence: None)
  Receive Date: 20060406
  Receipt Date: 20060329
  Transmission Date: 20061013
  Serious: Yes (Life-Threatening, Hospitalization, Disabling)
  Sender: FDA-Public Use
  Company Number: US-MERCK-0603USA04481

PATIENT
  Age: 81 Year
  Sex: Male

DRUGS (2)
  1. ZOCOR [Suspect]
     Route: 048
  2. [THERAPY UNSPECIFIED] [Concomitant]
     Indication: MIGRAINE
     Route: 065

REACTIONS (1)
  - HEPATIC FAILURE [None]
